FAERS Safety Report 21094952 (Version 1)
Quarter: 2022Q3

REPORT INFORMATION
  Report Type: Spontaneous
  Country: GB (occurrence: GB)
  Receive Date: 20220718
  Receipt Date: 20220718
  Transmission Date: 20221026
  Serious: Yes (Hospitalization)
  Sender: FDA-Public Use
  Company Number: GB-MYLANLABS-2022M1079162

PATIENT
  Age: 10 Decade
  Sex: Female

DRUGS (5)
  1. BISOPROLOL [Suspect]
     Active Substance: BISOPROLOL
     Indication: Atrial fibrillation
     Dosage: 10 MILLIGRAM
     Route: 065
     Dates: start: 2018
  2. BISOPROLOL [Suspect]
     Active Substance: BISOPROLOL
     Dosage: THERAPY WAS UP-TITRATED
     Route: 065
     Dates: start: 2018
  3. MAGNESIUM SULFATE [Suspect]
     Active Substance: MAGNESIUM SULFATE
     Indication: Atrial fibrillation
     Dosage: UNK
     Route: 042
  4. DIGOXIN [Concomitant]
     Active Substance: DIGOXIN
     Indication: Atrial fibrillation
     Dosage: UNK
     Route: 065
  5. DIGOXIN [Concomitant]
     Active Substance: DIGOXIN
     Dosage: THERAPY WAS UP-TITRATED
     Route: 065

REACTIONS (2)
  - Myasthenia gravis crisis [Recovered/Resolved]
  - Off label use [Unknown]
